FAERS Safety Report 5099953-0 (Version None)
Quarter: 2006Q3

REPORT INFORMATION
  Report Type: 
  Country: None (occurrence: None)
  Receive Date: 20060908
  Receipt Date: 20060831
  Transmission Date: 20061208
  Serious: Yes (Hospitalization)
  Sender: FDA-Public Use
  Company Number: DE-BRISTOL-MYERS SQUIBB COMPANY-13498829

PATIENT
  Age: 70 Year
  Sex: Male

DRUGS (2)
  1. ERBITUX [Suspect]
     Indication: NON-SMALL CELL LUNG CANCER
     Route: 040
     Dates: start: 20060829
  2. GEMCITABINE [Suspect]
     Indication: NON-SMALL CELL LUNG CANCER
     Route: 042
     Dates: start: 20060829

REACTIONS (3)
  - ARRHYTHMIA [None]
  - INFUSION RELATED REACTION [None]
  - PYREXIA [None]
